FAERS Safety Report 25528596 (Version 1)
Quarter: 2025Q3

REPORT INFORMATION
  Report Type: Other
  Country: GB (occurrence: GB)
  Receive Date: 20250708
  Receipt Date: 20250708
  Transmission Date: 20251021
  Serious: Yes (Disabling, Other)
  Sender: MACLEODS
  Company Number: None

PATIENT

DRUGS (1)
  1. ESCITALOPRAM [Suspect]
     Active Substance: ESCITALOPRAM OXALATE
     Indication: Depression
     Route: 065
     Dates: start: 20230201, end: 20240612

REACTIONS (7)
  - Hyperhidrosis [Not Recovered/Not Resolved]
  - Sexual dysfunction [Not Recovered/Not Resolved]
  - Headache [Unknown]
  - Palpitations [Not Recovered/Not Resolved]
  - Constipation [Unknown]
  - Libido decreased [Recovered/Resolved with Sequelae]
  - Tremor [Not Recovered/Not Resolved]
